FAERS Safety Report 6050563-8 (Version None)
Quarter: 2009Q1

REPORT INFORMATION
  Report Type: 
  Country: None (occurrence: None)
  Receive Date: 20090122
  Receipt Date: 20090122
  Transmission Date: 20090719
  Serious: Yes (Hospitalization)
  Sender: FDA-Public Use
  Company Number: None

PATIENT
  Sex: Female
  Weight: 49 kg

DRUGS (5)
  1. MERCAPTOPURINE [Suspect]
     Dosage: 3600 MG
     Dates: start: 20081129, end: 20081229
  2. METHOTREXATE [Suspect]
     Dosage: 115 MG
     Dates: start: 20081201, end: 20081222
  3. PREDNISONE [Suspect]
     Dosage: 600 MG
  4. VINCRISTINE SULFATE [Suspect]
     Dosage: 4 MG
  5. PENTAMIDINE [Concomitant]

REACTIONS (24)
  - ABDOMINAL DISTENSION [None]
  - ASCITES [None]
  - BILIRUBIN CONJUGATED INCREASED [None]
  - BLOOD BILIRUBIN INCREASED [None]
  - CULTURE POSITIVE [None]
  - FLUID OVERLOAD [None]
  - GALLBLADDER DISORDER [None]
  - HEPATIC FUNCTION ABNORMAL [None]
  - HEPATIC VEIN OCCLUSION [None]
  - HEPATOMEGALY [None]
  - HEPATOSPLENOMEGALY [None]
  - HERPES ZOSTER [None]
  - HYPOALBUMINAEMIA [None]
  - HYPOTENSION [None]
  - INTERNATIONAL NORMALISED RATIO INCREASED [None]
  - JAUNDICE [None]
  - LIVER FUNCTION TEST ABNORMAL [None]
  - NEUTROPENIA [None]
  - PLEURAL EFFUSION [None]
  - SHOCK [None]
  - SKIN LESION [None]
  - TACHYCARDIA [None]
  - TRANSAMINASES INCREASED [None]
  - VENOOCCLUSIVE LIVER DISEASE [None]
